FAERS Safety Report 8154229-X (Version None)
Quarter: 2012Q1

REPORT INFORMATION
  Report Type: 
  Country: None (occurrence: None)
  Receive Date: 20120103
  Receipt Date: 20111028
  Transmission Date: 20120608
  Serious: No
  Sender: FDA-Public Use
  Company Number: AE-2011-002811

PATIENT
  Age: 55 Year
  Sex: Male
  Weight: 106.5953 kg

DRUGS (6)
  1. INCIVEK [Suspect]
     Dosage: 2250 MG (750 MG,3 IN 1 D),ORAL
     Route: 048
     Dates: start: 20111003
  2. GLYBURIDE [Concomitant]
  3. ALBUTEROL [Concomitant]
  4. RIBAVIRIN [Concomitant]
  5. LISINOPRIL [Concomitant]
  6. INTERFERON (PEGINTERFERON ALFA-2A) [Concomitant]

REACTIONS (2)
  - MOOD SWINGS [None]
  - DYSPNOEA [None]
